FAERS Safety Report 10456383 (Version 1)
Quarter: 2014Q3

REPORT INFORMATION
  Report Type: Spontaneous
  Country: US (occurrence: None)
  Receive Date: 20140915
  Receipt Date: 20140915
  Transmission Date: 20150326
  Serious: Yes (Other)
  Sender: FDA-Public Use
  Company Number: None

PATIENT
  Sex: Female
  Weight: 50 kg

DRUGS (1)
  1. PROLIA [Suspect]
     Active Substance: DENOSUMAB
     Dosage: 60 MG Q6MONTHS SUB-Q
     Route: 058
     Dates: start: 20140402, end: 20140912

REACTIONS (3)
  - Pain [None]
  - Malaise [None]
  - Dizziness [None]
